FAERS Safety Report 13338906 (Version 12)
Quarter: 2017Q4

REPORT INFORMATION
  Report Type: Spontaneous
  Country: US (occurrence: US)
  Receive Date: 20170315
  Receipt Date: 20171225
  Transmission Date: 20180320
  Serious: Yes (Congenital Anomaly, Other)
  Sender: FDA-Public Use
  Company Number: PHEH2017US007649

PATIENT
  Sex: Male

DRUGS (3)
  1. ZOFRAN [Suspect]
     Active Substance: ONDANSETRON HYDROCHLORIDE
     Indication: FOETAL EXPOSURE DURING PREGNANCY
     Route: 064
  2. ONDANSETRON [Suspect]
     Active Substance: ONDANSETRON
     Indication: FOETAL EXPOSURE DURING PREGNANCY
     Dosage: MOTHER^S DOSE: 1 DF, EVERY 4 TO 6 HOURS
     Route: 064
  3. ONDANSETRON DR REDDY [Suspect]
     Active Substance: ONDANSETRON
     Indication: FOETAL EXPOSURE DURING PREGNANCY
     Dosage: MOTHER^S DOSE: 4 MG, Q6H, PRN
     Route: 064

REACTIONS (52)
  - Patent ductus arteriosus [Recovered/Resolved]
  - Myocardial fibrosis [Unknown]
  - Congenital pulmonary valve atresia [Unknown]
  - Neonatal respiratory failure [Unknown]
  - Pericarditis [Unknown]
  - Heart valve incompetence [Unknown]
  - Sinus tachycardia [Unknown]
  - Pyrexia [Unknown]
  - Constipation [Unknown]
  - Haematochezia [Unknown]
  - Foetal exposure during pregnancy [Unknown]
  - Speech disorder developmental [Unknown]
  - Ventricular septal defect [Unknown]
  - Pulmonary artery stenosis congenital [Unknown]
  - Right aortic arch [Unknown]
  - Ectopia cordis [Unknown]
  - Laevocardia [Unknown]
  - Pulmonary vein occlusion [Unknown]
  - Cardiomegaly [Unknown]
  - Angioedema [Unknown]
  - Dysphagia [Unknown]
  - Snoring [Unknown]
  - Univentricular heart [Unknown]
  - Left-to-right cardiac shunt [Unknown]
  - Cyanosis neonatal [Unknown]
  - Pericardial effusion [Unknown]
  - Right atrial enlargement [Unknown]
  - Pleural effusion [Unknown]
  - Cardiac murmur [Unknown]
  - Poor weight gain neonatal [Unknown]
  - Muscular weakness [Unknown]
  - Transposition of the great vessels [Unknown]
  - Neonatal tachypnoea [Unknown]
  - Left ventricular hypertrophy [Unknown]
  - Croup infectious [Unknown]
  - Neonatal hypoxia [Unknown]
  - Injury [Unknown]
  - Cough [Unknown]
  - Eructation [Unknown]
  - Upper respiratory tract congestion [Unknown]
  - Atrial septal defect [Unknown]
  - Coarctation of the aorta [Unknown]
  - Ventricular hypertrophy [Unknown]
  - Otitis media chronic [Unknown]
  - Abdominal discomfort [Unknown]
  - Swelling [Unknown]
  - Ventricular hypoplasia [Unknown]
  - Heart disease congenital [Unknown]
  - Atelectasis [Unknown]
  - Selective eating disorder [Unknown]
  - Middle ear effusion [Unknown]
  - Thymus disorder [Unknown]
